FAERS Safety Report 9294964 (Version 1)
Quarter: 2013Q2

REPORT INFORMATION
  Report Type: Spontaneous
  Country: US (occurrence: None)
  Receive Date: 20130516
  Receipt Date: 20130516
  Transmission Date: 20140414
  Serious: Yes (Other)
  Sender: FDA-Public Use
  Company Number: None

PATIENT
  Age: 65 Year
  Sex: Male
  Weight: 81.65 kg

DRUGS (2)
  1. POTASSIUM [Suspect]
  2. VITAMIN B [Suspect]

REACTIONS (3)
  - Wrong drug administered [None]
  - Drug dispensing error [None]
  - Intercepted drug administration error [None]
